FAERS Safety Report 9672064 (Version 1)
Quarter: 2013Q4

REPORT INFORMATION
  Report Type: Spontaneous
  Country: US (occurrence: None)
  Receive Date: 20131105
  Receipt Date: 20131105
  Transmission Date: 20140711
  Serious: No
  Sender: FDA-Public Use
  Company Number: None

PATIENT
  Age: 82 Year
  Sex: Male
  Weight: 68.04 kg

DRUGS (11)
  1. ADVAIR DISKUS [Suspect]
     Indication: RESPIRATORY DISORDER
     Dosage: 1 PUFF, INHALER
     Route: 048
     Dates: start: 20131001, end: 20131020
  2. PICOCAMPINE [Concomitant]
  3. TIMOPTIC [Concomitant]
  4. HYDROCH [Concomitant]
  5. ATENOLOL [Concomitant]
  6. SIMVASTATIN [Concomitant]
  7. LOSARTAN [Concomitant]
  8. NIACIN [Concomitant]
  9. WARFARIN [Concomitant]
  10. FUROSEMIDE [Concomitant]
  11. POTASSIUM [Concomitant]

REACTIONS (4)
  - Oral candidiasis [None]
  - Chest pain [None]
  - Dysphonia [None]
  - Drug ineffective [None]
